FAERS Safety Report 7532972-0 (Version None)
Quarter: 2011Q2

REPORT INFORMATION
  Report Type: 
  Country: None (occurrence: None)
  Receive Date: 20110607
  Receipt Date: 20110607
  Transmission Date: 20111010
  Serious: Yes (Other)
  Sender: FDA-Public Use
  Company Number: None

PATIENT
  Sex: Male
  Weight: 95.2554 kg

DRUGS (15)
  1. METFORMIN HCL [Concomitant]
  2. PEPCIS [Concomitant]
  3. CONCERTA [Concomitant]
  4. PLAVIX [Concomitant]
  5. BUSPIRONE HCL [Concomitant]
  6. TRICOR [Concomitant]
  7. ASPIRIN [Concomitant]
  8. BISOPROLOL/ZIAC HCTZ [Concomitant]
  9. SIMVASTATIN [Suspect]
     Indication: BLOOD CHOLESTEROL INCREASED
     Dosage: 40 MG DAILY PO
     Route: 048
     Dates: start: 20100919, end: 20110304
  10. SIMVASTATIN [Suspect]
     Indication: BLOOD CHOLESTEROL INCREASED
     Dosage: 80 MG DAILY PO
     Route: 048
     Dates: start: 20110304, end: 20110512
  11. LOVAZA [Concomitant]
  12. CYMBALTA [Concomitant]
  13. RAPAFLO [Concomitant]
  14. SINGULAIR [Concomitant]
  15. LYRICA [Concomitant]

REACTIONS (1)
  - NEUROPATHY PERIPHERAL [None]
